FAERS Safety Report 17001153 (Version 2)
Quarter: 2019Q4

REPORT INFORMATION
  Report Type: Report from Study
  Country: CO (occurrence: CO)
  Receive Date: 20191106
  Receipt Date: 20191218
  Transmission Date: 20200122
  Serious: Yes (Death, Hospitalization, Other)
  Sender: FDA-Public Use
  Company Number: CO-ASTELLAS-2019US041937

PATIENT
  Age: 68 Year
  Sex: Male

DRUGS (1)
  1. ENZALUTAMIDE [Suspect]
     Active Substance: ENZALUTAMIDE
     Indication: HORMONE-REFRACTORY PROSTATE CANCER
     Route: 048
     Dates: start: 20190729

REACTIONS (4)
  - Asthenia [Not Recovered/Not Resolved]
  - Drug ineffective [Unknown]
  - Neoplasm malignant [Fatal]
  - Pain [Unknown]

NARRATIVE: CASE EVENT DATE: 20190729
